FAERS Safety Report 8197175-8 (Version None)
Quarter: 2012Q1

REPORT INFORMATION
  Report Type: 
  Country: None (occurrence: None)
  Receive Date: 20120309
  Receipt Date: 20120229
  Transmission Date: 20120608
  Serious: Yes (Hospitalization)
  Sender: FDA-Public Use
  Company Number: AU-JNJFOC-20120301190

PATIENT
  Sex: Female

DRUGS (7)
  1. PREDNISONE [Concomitant]
  2. PLAQUENIL [Concomitant]
  3. ASCORBIC ACID [Concomitant]
  4. SIMPONI [Suspect]
     Indication: RHEUMATOID ARTHRITIS
     Route: 058
     Dates: start: 20120212
  5. FOSAMAX [Concomitant]
  6. SIMPONI [Suspect]
     Route: 058
     Dates: start: 20110424
  7. FOLIC ACID [Concomitant]

REACTIONS (2)
  - THORACIC VERTEBRAL FRACTURE [None]
  - BRONCHITIS [None]
